FAERS Safety Report 4769057-2 (Version None)
Quarter: 2005Q3

REPORT INFORMATION
  Report Type: 
  Country: None (occurrence: None)
  Receive Date: 20050913
  Receipt Date: 20050829
  Transmission Date: 20060218
  Serious: Yes (Life-Threatening)
  Sender: FDA-Public Use
  Company Number: 203820

PATIENT
  Age: 53 Year
  Sex: Female

DRUGS (2)
  1. HERCEPTIN [Suspect]
     Indication: BREAST CANCER
     Dosage: SEE IMAGE
     Route: 042
  2. TAMOXIFEN CITRATE [Concomitant]

REACTIONS (5)
  - BRAIN DAMAGE [None]
  - CAROTID ARTERY STENOSIS [None]
  - DEPRESSED LEVEL OF CONSCIOUSNESS [None]
  - FATIGUE [None]
  - VISUAL DISTURBANCE [None]
